FAERS Safety Report 8997330 (Version 3)
Quarter: 2013Q1

REPORT INFORMATION
  Report Type: Spontaneous
  Country: US (occurrence: US)
  Receive Date: 20130104
  Receipt Date: 20130314
  Transmission Date: 20140127
  Serious: Yes (Hospitalization, Other)
  Sender: FDA-Public Use
  Company Number: US-ASTRAZENECA-2012SE96004

PATIENT
  Age: 56 Year
  Sex: Male
  Weight: 88.9 kg

DRUGS (14)
  1. NEXIUM [Suspect]
     Indication: GASTROOESOPHAGEAL REFLUX DISEASE
     Route: 048
     Dates: start: 2000, end: 201201
  2. OMEPRAZOLE [Suspect]
     Indication: GASTROOESOPHAGEAL REFLUX DISEASE
     Dosage: TWICE DAILY
  3. ATENOLOL [Suspect]
  4. OXYGEN [Concomitant]
  5. ALBUTEROL [Concomitant]
     Dosage: INHALER
  6. ALBUTEROL [Concomitant]
     Dosage: NEBULIZER
  7. ADVAIR [Concomitant]
     Dosage: INHALER
  8. ALPRAZOLAM [Concomitant]
  9. FENOFIBRATE [Concomitant]
  10. FLUOXETINE [Concomitant]
  11. HYDROCODONE/ACETAMINOPHIN [Concomitant]
  12. LIPITOR [Concomitant]
  13. SYNTHROID [Concomitant]
  14. PREDNISONE [Concomitant]

REACTIONS (10)
  - Gastrooesophageal reflux disease [Unknown]
  - Aspiration [Unknown]
  - Metastatic squamous cell carcinoma [Unknown]
  - Pneumonia [Unknown]
  - Pulmonary fibrosis [Unknown]
  - Intentional drug misuse [Unknown]
  - Neoplasm malignant [Unknown]
  - Dysphagia [Unknown]
  - Drug ineffective [Unknown]
  - Off label use [Unknown]
